FAERS Safety Report 6355356-X (Version None)
Quarter: 2009Q3

REPORT INFORMATION
  Report Type: 
  Country: None (occurrence: None)
  Receive Date: 20090914
  Receipt Date: 20090828
  Transmission Date: 20100115
  Serious: Yes (Other)
  Sender: FDA-Public Use
  Company Number: US-BAYER-200931763NA

PATIENT
  Age: 34 Year
  Sex: Female
  Weight: 64 kg

DRUGS (13)
  1. MAGNEVIST [Suspect]
     Indication: NUCLEAR MAGNETIC RESONANCE IMAGING BRAIN
     Dosage: TOTAL DAILY DOSE: 30 ML
     Dates: start: 20051230, end: 20051230
  2. UNSPECIFIED GBCA [Suspect]
     Indication: ANGIOGRAM
     Dosage: 0.2MMOL/KG (RENAL MRA PROTOCOL PER RADIOLOGY REPORT)
     Route: 042
     Dates: start: 20051230, end: 20051230
  3. PREDNISONE [Concomitant]
  4. PLAQUENIL [Concomitant]
  5. IMURAN [Concomitant]
  6. CALCIUM [Concomitant]
  7. LOTENSIN [Concomitant]
  8. KLONOPIN [Concomitant]
  9. LEXAPRO [Concomitant]
  10. CYTOXAN [Concomitant]
     Dosage: 2 COURSES
  11. PROCRIT [Concomitant]
     Dosage: 20,000 UNITS PER WEEK
  12. DIFLUCAN [Concomitant]
     Dates: start: 20051201
  13. NEULASTA [Concomitant]
     Dates: start: 20051216

REACTIONS (10)
  - ABASIA [None]
  - ARTHRALGIA [None]
  - ERYTHEMA [None]
  - JOINT RANGE OF MOTION DECREASED [None]
  - NEPHROGENIC SYSTEMIC FIBROSIS [None]
  - OEDEMA PERIPHERAL [None]
  - PAIN IN EXTREMITY [None]
  - RASH [None]
  - SKIN HYPERTROPHY [None]
  - SKIN INDURATION [None]
